FAERS Safety Report 5186359-9 (Version None)
Quarter: 2006Q4

REPORT INFORMATION
  Report Type: 
  Country: None (occurrence: None)
  Receive Date: 20061220
  Receipt Date: 20050420
  Transmission Date: 20070319
  Serious: Yes (Other)
  Sender: FDA-Public Use
  Company Number: US-ELI_LILLY_AND_COMPANY-USA050496172

PATIENT
  Age: 65 Year
  Sex: Male
  Weight: 102.49 kg

DRUGS (9)
  1. STRATTERA [Suspect]
     Indication: ATTENTION DEFICIT/HYPERACTIVITY DISORDER
     Dosage: 80 MG, DAILY (1/D)
     Dates: start: 20050201, end: 20050420
  2. RABEPRAZOLE SODIUM [Concomitant]
     Indication: GASTROOESOPHAGEAL REFLUX DISEASE
     Dosage: 20 MG, DAILY (1/D)
  3. POTASSIUM CHLORIDE [Concomitant]
     Dosage: 8 UNK, UNKNOWN
  4. METOPROLOL SUCCINATE [Concomitant]
     Indication: BLOOD PRESSURE
     Dosage: 100 MG, DAILY (1/D)
  5. GEMFIBROZIL [Concomitant]
     Indication: BLOOD TRIGLYCERIDES
     Dosage: 600 MG, 2/D
  6. LOPERAMIDE HCL [Concomitant]
     Indication: IRRITABLE BOWEL SYNDROME
     Dosage: UNK, UNKNOWN
  7. GABAPENTIN [Concomitant]
     Indication: HYPOAESTHESIA
     Dosage: 300 MG, 2/D
  8. OMEGA 3 [Concomitant]
     Dosage: UNK, UNKNOWN
  9. VITAMINS [Concomitant]
     Dosage: UNK, UNKNOWN

REACTIONS (30)
  - BALANCE DISORDER [None]
  - BLOOD PRESSURE FLUCTUATION [None]
  - CONTUSION [None]
  - CRYING [None]
  - DIPLOPIA [None]
  - DIZZINESS [None]
  - DRY MOUTH [None]
  - DYSPNOEA [None]
  - DYSURIA [None]
  - EYE IRRITATION [None]
  - EYE PRURITUS [None]
  - FALL [None]
  - FATIGUE [None]
  - FEELING ABNORMAL [None]
  - GAIT DISTURBANCE [None]
  - HEADACHE [None]
  - INSOMNIA [None]
  - IRRITABILITY [None]
  - LOSS OF CONSCIOUSNESS [None]
  - MEMORY IMPAIRMENT [None]
  - MOOD SWINGS [None]
  - MUSCLE CONTRACTURE [None]
  - NIGHT BLINDNESS [None]
  - ORTHOSTATIC HYPOTENSION [None]
  - PAIN IN EXTREMITY [None]
  - POST-TRAUMATIC STRESS DISORDER [None]
  - SOMATISATION DISORDER [None]
  - SPINAL FRACTURE [None]
  - TINNITUS [None]
  - VISION BLURRED [None]
